FAERS Safety Report 6313465-5 (Version None)
Quarter: 2009Q3

REPORT INFORMATION
  Report Type: 
  Country: None (occurrence: None)
  Receive Date: 20090818
  Receipt Date: 20090807
  Transmission Date: 20100115
  Serious: Yes (Other)
  Sender: FDA-Public Use
  Company Number: US-JNJFOC-20090804024

PATIENT
  Sex: Male
  Weight: 99.79 kg

DRUGS (3)
  1. NUCYNTA [Suspect]
     Indication: BACK PAIN
     Route: 048
  2. CHOLESTEROL DRUG, NOS [Concomitant]
     Route: 048
  3. ^BLOOD PRESSURE^ MEDICATION [Concomitant]

REACTIONS (4)
  - COGNITIVE DISORDER [None]
  - DIZZINESS [None]
  - DYSARTHRIA [None]
  - IMPAIRED WORK ABILITY [None]
